FAERS Safety Report 7488634-1 (Version None)
Quarter: 2011Q2

REPORT INFORMATION
  Report Type: 
  Country: None (occurrence: None)
  Receive Date: 20110518
  Receipt Date: 20110510
  Transmission Date: 20111010
  Serious: Yes (Hospitalization, Disabling)
  Sender: FDA-Public Use
  Company Number: A0882100A

PATIENT
  Age: 34 Year
  Sex: Male

DRUGS (9)
  1. ALBUTEROL [Concomitant]
  2. ZANTAC [Concomitant]
  3. ALPRAZOLAM [Concomitant]
  4. LEXAPRO [Concomitant]
  5. LORATADINE [Concomitant]
  6. LAMICTAL [Suspect]
     Route: 048
     Dates: start: 20080821, end: 20080926
  7. ACYCLOVIR [Concomitant]
  8. RISPERDAL [Concomitant]
     Dates: start: 20080901
  9. FLONASE [Concomitant]

REACTIONS (3)
  - STEVENS-JOHNSON SYNDROME [None]
  - TOXIC EPIDERMAL NECROLYSIS [None]
  - SKIN REACTION [None]
